FAERS Safety Report 4406611-1 (Version None)
Quarter: 2004Q3

REPORT INFORMATION
  Report Type: 
  Country: None (occurrence: None)
  Receive Date: 20040716
  Receipt Date: 20040707
  Transmission Date: 20050211
  Serious: Yes (Other)
  Sender: FDA-Public Use
  Company Number: 2004-07-0214

PATIENT
  Age: 27 Year
  Sex: Female
  Weight: 168 kg

DRUGS (1)
  1. TEMODAL [Suspect]
     Indication: GLIOMA
     Dosage: 200 MGX1 ORAL
     Route: 048
     Dates: start: 20040617, end: 20040617

REACTIONS (2)
  - LOSS OF CONSCIOUSNESS [None]
  - PYREXIA [None]
